FAERS Safety Report 4876083-1 (Version None)
Quarter: 2006Q1

REPORT INFORMATION
  Report Type: 
  Country: None (occurrence: None)
  Receive Date: 20060106
  Receipt Date: 20060106
  Transmission Date: 20060701
  Serious: Yes (Other)
  Sender: FDA-Public Use
  Company Number: None

PATIENT
  Age: 54 Year
  Sex: Female

DRUGS (34)
  1. GAMIMUNE N 10% [Suspect]
     Indication: AUTOIMMUNE DISORDER
     Dosage: 600 ML Q 3 WKS IV PER IMPLANT PORT
     Route: 042
     Dates: start: 20051103
  2. ACCUPRIL [Concomitant]
  3. ALBUTEROL/ATROVENT [Concomitant]
  4. ALLERGY INJECTION [Concomitant]
  5. AMBIEN [Concomitant]
  6. CELEBREX [Concomitant]
  7. COMBIVENT [Concomitant]
  8. DOXEPIN [Concomitant]
  9. ESTRATEST [Concomitant]
  10. GAMMUNEX [Concomitant]
  11. HYDROZXYZINE [Concomitant]
  12. IMITREX [Concomitant]
  13. K-DUR 10 [Concomitant]
  14. LASIX [Concomitant]
  15. NASONEX [Concomitant]
  16. NEXIUM [Concomitant]
  17. PATENOL EYE GTTS [Concomitant]
  18. PREDNISONE [Concomitant]
  19. PREMARIN [Concomitant]
  20. REGLAN [Concomitant]
  21. SINGULAIR [Concomitant]
  22. SOMA [Concomitant]
  23. TESSALON [Concomitant]
  24. THEOPHYLLINE [Concomitant]
  25. VOLMAX [Concomitant]
  26. XANAX [Concomitant]
  27. ZOFRAN [Concomitant]
  28. ZOFRAN [Concomitant]
  29. ZOLOFT [Concomitant]
  30. LUNESTA [Concomitant]
  31. FLAGYL [Concomitant]
  32. COUMADIN [Concomitant]
  33. ZITHROMAX [Concomitant]
  34. DURAGESIC-100 [Concomitant]

REACTIONS (3)
  - DYSPNOEA [None]
  - RASH [None]
  - WHEEZING [None]
